FAERS Safety Report 7333077-4 (Version None)
Quarter: 2011Q1

REPORT INFORMATION
  Report Type: 
  Country: None (occurrence: None)
  Receive Date: 20110304
  Receipt Date: 20110218
  Transmission Date: 20110831
  Serious: Yes (Death, Hospitalization)
  Sender: FDA-Public Use
  Company Number: ES-CELGENEUS-144-21880-11021183

PATIENT
  Sex: Male

DRUGS (8)
  1. SEGURIL [Concomitant]
     Route: 065
  2. DIGOXIN [Concomitant]
     Indication: ATRIAL FIBRILLATION
     Route: 065
  3. REVLIMID [Suspect]
     Indication: CARDIAC AMYLOIDOSIS
     Dosage: 25 MILLIGRAM
     Route: 048
     Dates: start: 20101027, end: 20110116
  4. HYDROCHLOROTHIAZIDE [Concomitant]
     Route: 065
  5. ALMAGATE [Concomitant]
     Route: 065
  6. SINTROM [Concomitant]
     Indication: ATRIAL FIBRILLATION
     Dosage: 4 MILLIGRAM
     Route: 065
  7. PREDNISONE [Concomitant]
     Indication: CARDIAC AMYLOIDOSIS
     Route: 065
  8. OMEPRAZOLE [Concomitant]
     Dosage: 20 MILLIGRAM
     Route: 065

REACTIONS (2)
  - CARDIAC AMYLOIDOSIS [None]
  - DEEP VEIN THROMBOSIS [None]
